FAERS Safety Report 10260376 (Version 1)
Quarter: 2014Q2

REPORT INFORMATION
  Report Type: Spontaneous
  Country: IT (occurrence: IT)
  Receive Date: 20140625
  Receipt Date: 20140625
  Transmission Date: 20141212
  Serious: Yes (Hospitalization)
  Sender: FDA-Public Use
  Company Number: IT-ABBVIE-14K-083-1252148-00

PATIENT
  Age: 37 Year
  Sex: Female

DRUGS (5)
  1. DEPAKINE CHRONO [Suspect]
     Indication: DRUG ABUSE
     Route: 048
     Dates: start: 20140215, end: 20140215
  2. VENLAFAXINE [Suspect]
     Indication: DRUG ABUSE
     Route: 048
     Dates: start: 20140215, end: 20140215
  3. LARGACTIL [Suspect]
     Indication: DRUG ABUSE
     Route: 048
     Dates: start: 20140215, end: 20140215
  4. ABILIFY [Suspect]
     Indication: DRUG ABUSE
     Route: 048
     Dates: start: 20140215, end: 20140215
  5. EN [Suspect]
     Indication: DRUG ABUSE
     Route: 048
     Dates: start: 20140215, end: 20140215

REACTIONS (3)
  - Injury [Unknown]
  - Confusional state [Unknown]
  - Drug abuse [Unknown]
